FAERS Safety Report 13614348 (Version 1)
Quarter: 2017Q2

REPORT INFORMATION
  Report Type: Spontaneous
  Country: US (occurrence: US)
  Receive Date: 20170605
  Receipt Date: 20170605
  Transmission Date: 20170830
  Serious: Yes (Other)
  Sender: FDA-Public Use
  Company Number: None

PATIENT
  Age: 49 Year
  Sex: Female

DRUGS (2)
  1. GLEEVEC [Suspect]
     Active Substance: IMATINIB MESYLATE
     Indication: LEUKAEMIA
     Route: 048
     Dates: start: 20170531, end: 20170605
  2. GLEEVEC [Suspect]
     Active Substance: IMATINIB MESYLATE
     Indication: MALIGNANT MAST CELL NEOPLASM
     Route: 048
     Dates: start: 20170531, end: 20170605

REACTIONS (4)
  - Oedema peripheral [None]
  - Eye oedema [None]
  - Pharyngeal oedema [None]
  - Therapy change [None]

NARRATIVE: CASE EVENT DATE: 20170601
